FAERS Safety Report 4640468-9 (Version None)
Quarter: 2005Q2

REPORT INFORMATION
  Report Type: 
  Country: None (occurrence: None)
  Receive Date: 20050419
  Receipt Date: 20050406
  Transmission Date: 20051028
  Serious: Yes (Death)
  Sender: FDA-Public Use
  Company Number: 213662

PATIENT
  Age: 66 Year
  Sex: Female

DRUGS (4)
  1. RITUXAN [Suspect]
     Indication: NON-HODGKIN'S LYMPHOMA
     Dates: start: 20030101
  2. ZEVALIN [Concomitant]
  3. ETOPOSIDE [Concomitant]
  4. CYCLOPHOSPHAMIDE [Concomitant]

REACTIONS (12)
  - APHASIA [None]
  - CONFUSIONAL STATE [None]
  - DYSPHAGIA [None]
  - ENCEPHALITIS VIRAL [None]
  - NEOPLASM RECURRENCE [None]
  - NEUTROPENIA [None]
  - NON-HODGKIN'S LYMPHOMA [None]
  - NUCLEAR MAGNETIC RESONANCE IMAGING BRAIN ABNORMAL [None]
  - PARALYSIS FLACCID [None]
  - RESPIRATORY DISTRESS [None]
  - TREMOR [None]
  - VIRUS SEROLOGY TEST POSITIVE [None]
